FAERS Safety Report 5753369-X (Version None)
Quarter: 2008Q2

REPORT INFORMATION
  Report Type: 
  Country: None (occurrence: None)
  Receive Date: 20080530
  Receipt Date: 20080521
  Transmission Date: 20081010
  Serious: Yes (Death, Other)
  Sender: FDA-Public Use
  Company Number: FR-ELI_LILLY_AND_COMPANY-FR200805001765

PATIENT
  Age: 56 Year
  Sex: Male

DRUGS (5)
  1. CIALIS [Suspect]
     Indication: ERECTILE DYSFUNCTION
     Dosage: 10 MG, UNK
     Route: 048
     Dates: start: 20080406, end: 20080406
  2. AMAREL [Concomitant]
     Indication: TYPE 2 DIABETES MELLITUS
     Dosage: 2 MG, 2/D
  3. MONOTILDIEM [Concomitant]
     Dosage: 300 MG, DAILY (1/D)
  4. ESIDRIX [Concomitant]
     Dosage: 0.5 D/F, DAILY (1/D)
  5. IRBESARTAN [Concomitant]
     Dosage: 300 MG, DAILY (1/D)

REACTIONS (6)
  - ABDOMINAL PAIN UPPER [None]
  - DEATH [None]
  - DRUG INEFFECTIVE [None]
  - HYPERHIDROSIS [None]
  - NAUSEA [None]
  - PAIN IN EXTREMITY [None]
